FAERS Safety Report 9794658 (Version 2)
Quarter: 2014Q1

REPORT INFORMATION
  Report Type: Spontaneous
  Country: JP (occurrence: JP)
  Receive Date: 20140102
  Receipt Date: 20140102
  Transmission Date: 20141002
  Serious: Yes (Life-Threatening)
  Sender: FDA-Public Use
  Company Number: JP-BAYER-2013-146422

PATIENT
  Age: 71 Year
  Sex: Female
  Weight: 41 kg

DRUGS (11)
  1. STIVARGA [Suspect]
     Indication: GASTROINTESTINAL STROMAL TUMOUR
     Dosage: 160 MG, QD
     Route: 048
     Dates: start: 20131009, end: 20131030
  2. VESICARE [Suspect]
     Dosage: UNK
     Route: 048
     Dates: start: 20131029, end: 20131126
  3. THYRADIN S [Concomitant]
     Dosage: UNK
     Route: 048
  4. NORVASC [Concomitant]
     Dosage: UNK
     Route: 048
  5. LIMAS [Concomitant]
     Dosage: UNK
     Route: 048
  6. MYSLEE [Concomitant]
     Dosage: UNK
     Route: 048
  7. EVAMYL [Concomitant]
     Dosage: UNK
     Route: 048
  8. ARICEPT [Concomitant]
     Route: 048
  9. SALOBEL [Concomitant]
     Route: 048
  10. LASIX [Concomitant]
     Route: 048
  11. SLOW-K [Concomitant]
     Route: 048

REACTIONS (4)
  - Palmar-plantar erythrodysaesthesia syndrome [Unknown]
  - Diarrhoea [Unknown]
  - Rash [Unknown]
  - Erythema multiforme [Recovered/Resolved]
